FAERS Safety Report 7995675-4 (Version None)
Quarter: 2011Q4

REPORT INFORMATION
  Report Type: 
  Country: None (occurrence: None)
  Receive Date: 20111220
  Receipt Date: 20111209
  Transmission Date: 20120403
  Serious: No
  Sender: FDA-Public Use
  Company Number: US-ROXANE LABORATORIES, INC.-2011-RO-01406RO

PATIENT
  Age: 49 Year
  Sex: Female

DRUGS (2)
  1. OXYMORPHONE HYDROCHLORIDE [Suspect]
     Indication: BACK PAIN
  2. OXYMORPHONE HYDROCHLORIDE [Suspect]
     Indication: MIGRAINE
     Route: 048
     Dates: start: 20110901, end: 20111001

REACTIONS (3)
  - ABDOMINAL DISCOMFORT [None]
  - INFLUENZA LIKE ILLNESS [None]
  - DRUG INEFFECTIVE [None]
